FAERS Safety Report 9964344 (Version 1)
Quarter: 2014Q1

REPORT INFORMATION
  Report Type: Report from Study
  Country: US (occurrence: US)
  Receive Date: 20140305
  Receipt Date: 20140305
  Transmission Date: 20141002
  Serious: Yes (Other)
  Sender: FDA-Public Use
  Company Number: US-GLAXOSMITHKLINE-B0829832A

PATIENT
  Age: 34 Year
  Sex: Male
  Weight: 72.6 kg

DRUGS (1)
  1. GSK2118436 [Suspect]
     Indication: METASTATIC MALIGNANT MELANOMA
     Dosage: 150MG TWICE PER DAY
     Route: 048
     Dates: start: 20120817

REACTIONS (3)
  - Fatigue [Not Recovered/Not Resolved]
  - Decreased appetite [Not Recovered/Not Resolved]
  - Metastases to central nervous system [Unknown]
